FAERS Safety Report 6985171-5 (Version None)
Quarter: 2010Q3

REPORT INFORMATION
  Report Type: 
  Country: None (occurrence: None)
  Receive Date: 20100915
  Receipt Date: 20100906
  Transmission Date: 20110219
  Serious: Yes (Death)
  Sender: FDA-Public Use
  Company Number: BE-ROCHE-725366

PATIENT
  Sex: Male

DRUGS (1)
  1. AVASTIN [Suspect]
     Indication: RENAL CANCER METASTATIC
     Route: 065

REACTIONS (2)
  - EPISTAXIS [None]
  - MALIGNANT NEOPLASM PROGRESSION [None]
